FAERS Safety Report 6998924-4 (Version None)
Quarter: 2010Q3

REPORT INFORMATION
  Report Type: 
  Country: None (occurrence: None)
  Receive Date: 20100920
  Receipt Date: 20080115
  Transmission Date: 20110219
  Serious: No
  Sender: FDA-Public Use
  Company Number: US-ASTRAZENECA-2007UW20610

PATIENT
  Age: 389 Month
  Sex: Male
  Weight: 136.1 kg

DRUGS (14)
  1. SEROQUEL [Suspect]
     Indication: SLEEP DISORDER
     Route: 048
     Dates: start: 20010701, end: 20060401
  2. SEROQUEL [Suspect]
     Indication: BIPOLAR DISORDER
     Route: 048
     Dates: start: 20010701, end: 20060401
  3. SEROQUEL [Suspect]
     Dosage: 100-200MG
     Route: 048
     Dates: start: 20020107
  4. SEROQUEL [Suspect]
     Dosage: 100-200MG
     Route: 048
     Dates: start: 20020107
  5. WELLBUTRIN [Concomitant]
     Indication: BIPOLAR DISORDER
     Route: 048
     Dates: start: 20010601
  6. WELLBUTRIN [Concomitant]
     Dosage: 150-600MG
     Dates: start: 19960101
  7. MERIDIA [Concomitant]
     Indication: WEIGHT DECREASED
     Route: 048
     Dates: start: 20040216, end: 20040401
  8. PHENTERMINE [Concomitant]
     Route: 048
     Dates: start: 20050606, end: 20050901
  9. DIETHYLPROPION HCL [Concomitant]
  10. XENICAL [Concomitant]
     Route: 048
     Dates: start: 20050401, end: 20050601
  11. AMBIEN [Concomitant]
     Route: 048
  12. THYROID TAB [Concomitant]
  13. PREVACID [Concomitant]
     Dates: start: 20020426
  14. METFORMIN [Concomitant]
     Dates: start: 20040316

REACTIONS (9)
  - CHEST PAIN [None]
  - GROIN PAIN [None]
  - IRRITABILITY [None]
  - OBESITY [None]
  - RASH [None]
  - SKIN DISCOLOURATION [None]
  - TYPE 2 DIABETES MELLITUS [None]
  - URINARY TRACT INFECTION [None]
  - WEIGHT INCREASED [None]
